FAERS Safety Report 25818079 (Version 3)
Quarter: 2025Q4

REPORT INFORMATION
  Report Type: Report from Study
  Country: IN (occurrence: US)
  Receive Date: 20250918
  Receipt Date: 20251114
  Transmission Date: 20260118
  Serious: Yes (Hospitalization)
  Sender: PFIZER
  Company Number: IN-PFIZER INC-202500181768

PATIENT
  Age: 58 Year
  Sex: Male

DRUGS (11)
  1. METHOTREXATE SODIUM [Suspect]
     Active Substance: METHOTREXATE SODIUM
     Indication: Central nervous system lymphoma
     Dosage: 17 G, D1
     Route: 042
     Dates: start: 20230612, end: 20230612
  2. METHOTREXATE SODIUM [Suspect]
     Active Substance: METHOTREXATE SODIUM
     Dosage: 17 G, D15
     Route: 042
     Dates: start: 20230726, end: 20230726
  3. METHOTREXATE SODIUM [Suspect]
     Active Substance: METHOTREXATE SODIUM
     Dosage: 8 MG/M2, Q4HR
     Dates: start: 20240509, end: 20240509
  4. TIRABRUTINIB [Suspect]
     Active Substance: TIRABRUTINIB
     Indication: Central nervous system lymphoma
     Dosage: 320 MG, DAILY
     Route: 048
     Dates: start: 20230612, end: 20230730
  5. TIRABRUTINIB [Suspect]
     Active Substance: TIRABRUTINIB
     Dosage: 320 MG, DAILY
     Route: 048
     Dates: start: 20230925, end: 20230929
  6. TIRABRUTINIB [Suspect]
     Active Substance: TIRABRUTINIB
     Dosage: UNK
     Dates: start: 20240509, end: 20240513
  7. TIRABRUTINIB [Suspect]
     Active Substance: TIRABRUTINIB
     Dosage: UNK
     Dates: start: 20240515
  8. RITUXIMAB [Suspect]
     Active Substance: RITUXIMAB
     Indication: Central nervous system lymphoma
     Dosage: 375 MG/M2, C1D3 AND C2D10
     Route: 042
     Dates: start: 20230614, end: 20230719
  9. RITUXIMAB [Suspect]
     Active Substance: RITUXIMAB
     Dosage: UNK
     Dates: start: 20240510, end: 20240510
  10. TEMOZOLOMIDE [Suspect]
     Active Substance: TEMOZOLOMIDE
     Indication: Central nervous system lymphoma
     Dosage: 300 MG, DAILY
     Dates: start: 20230618, end: 20230815
  11. TEMOZOLOMIDE [Suspect]
     Active Substance: TEMOZOLOMIDE
     Dosage: UNK
     Dates: start: 20240517, end: 20240521

REACTIONS (7)
  - Acute kidney injury [Recovered/Resolved]
  - Drug level increased [Recovered/Resolved]
  - Fatigue [Recovered/Resolved]
  - Body temperature increased [Recovered/Resolved]
  - Malaise [Recovered/Resolved]
  - Abdominal pain lower [Recovered/Resolved]
  - Abscess [Recovered/Resolved]

NARRATIVE: CASE EVENT DATE: 20230809
